FAERS Safety Report 5301619-6 (Version None)
Quarter: 2007Q2

REPORT INFORMATION
  Report Type: 
  Country: None (occurrence: None)
  Receive Date: 20070419
  Receipt Date: 20070411
  Transmission Date: 20071010
  Serious: Yes (Hospitalization, Other)
  Sender: FDA-Public Use
  Company Number: ES-JNJFOC-20070402877

PATIENT
  Sex: Male

DRUGS (1)
  1. REMICADE [Suspect]
     Indication: RHEUMATOID ARTHRITIS
     Dosage: Q8WKS
     Route: 042

REACTIONS (4)
  - CHEST X-RAY ABNORMAL [None]
  - LUNG ADENOCARCINOMA [None]
  - METASTASES TO BONE [None]
  - RESPIRATORY TRACT INFECTION [None]
